FAERS Safety Report 17577881 (Version 1)
Quarter: 2020Q1

REPORT INFORMATION
  Report Type: Spontaneous
  Country: US (occurrence: US)
  Receive Date: 20200324
  Receipt Date: 20200324
  Transmission Date: 20200409
  Serious: Yes (Other)
  Sender: FDA-Public Use
  Company Number: NVSC2020US081844

PATIENT
  Age: 76 Year
  Sex: Male

DRUGS (1)
  1. PAZOPANIB [Suspect]
     Active Substance: PAZOPANIB
     Indication: RENAL CELL CARCINOMA
     Dosage: 400 MG, QD
     Route: 065

REACTIONS (6)
  - Proteinuria [Unknown]
  - Blood bilirubin increased [Unknown]
  - Fatigue [Unknown]
  - Thrombocytopenia [Unknown]
  - Liver function test increased [Unknown]
  - Hepatic lesion [Unknown]
